FAERS Safety Report 6849179-2 (Version None)
Quarter: 2010Q3

REPORT INFORMATION
  Report Type: 
  Country: None (occurrence: None)
  Receive Date: 20100716
  Receipt Date: 20100709
  Transmission Date: 20110219
  Serious: Yes (Hospitalization, Disabling)
  Sender: FDA-Public Use
  Company Number: PHHO2010FR03568

PATIENT
  Sex: Male

DRUGS (7)
  1. CERTICAN [Suspect]
     Indication: LIVER TRANSPLANT
     Dosage: 0.75 + 0.5 DAILY
     Route: 048
     Dates: start: 20090305, end: 20100708
  2. TACROLIMUS [Suspect]
     Indication: LIVER TRANSPLANT
     Dosage: 1 + 1 DAILY
     Route: 048
     Dates: start: 20090305
  3. AMAREL [Concomitant]
  4. VIREAD [Concomitant]
  5. GLUCOPHAGE [Concomitant]
  6. BACTRIM [Concomitant]
  7. NEXIUM [Concomitant]

REACTIONS (3)
  - COUGH [None]
  - LUNG DISORDER [None]
  - OBSTRUCTIVE AIRWAYS DISORDER [None]
